FAERS Safety Report 6882811-6 (Version None)
Quarter: 2010Q3

REPORT INFORMATION
  Report Type: 
  Country: None (occurrence: None)
  Receive Date: 20100729
  Receipt Date: 20100727
  Transmission Date: 20110219
  Serious: Yes (Death)
  Sender: FDA-Public Use
  Company Number: ES-SANOFI-AVENTIS-2010SA043782

PATIENT
  Age: 82 Year
  Sex: Male
  Weight: 60 kg

DRUGS (7)
  1. TAXOTERE [Suspect]
     Indication: GASTRIC CANCER
     Route: 041
     Dates: start: 20100521, end: 20100521
  2. TAXOTERE [Suspect]
     Route: 041
     Dates: start: 20100702, end: 20100702
  3. OXALIPLATIN [Suspect]
     Indication: GASTRIC CANCER
     Route: 042
     Dates: start: 20100521, end: 20100521
  4. OXALIPLATIN [Suspect]
     Route: 042
     Dates: start: 20100702, end: 20100702
  5. CAPECITABINE [Suspect]
     Indication: GASTRIC CANCER
     Route: 048
     Dates: start: 20100521, end: 20100716
  6. OMEPRAZOLE [Concomitant]
     Dates: start: 20100513
  7. METFORMIN HCL [Concomitant]

REACTIONS (1)
  - SUDDEN DEATH [None]
